FAERS Safety Report 9541894 (Version 1)
Quarter: 2013Q3

REPORT INFORMATION
  Report Type: Spontaneous
  Country: US (occurrence: US)
  Receive Date: 20130923
  Receipt Date: 20130923
  Transmission Date: 20140515
  Serious: Yes (Hospitalization, Other)
  Sender: FDA-Public Use
  Company Number: PHHY2013US103538

PATIENT
  Age: 44 Year
  Sex: Female

DRUGS (9)
  1. OXCARBAZEPINE [Suspect]
     Indication: BIPOLAR DISORDER
     Dosage: UNK UKN, UNK
  2. METHYLPHENIDATE [Suspect]
     Indication: PSYCHOTIC DISORDER
     Dosage: UNK UKN, UNK
  3. VALPROIC ACID [Suspect]
     Indication: PETIT MAL EPILEPSY
     Dosage: UNK UKN, UNK
  4. VALPROIC ACID [Suspect]
     Dosage: UNK UKN, UNK, DOSE ADJUSTMENT
  5. VALPROIC ACID [Suspect]
     Dosage: UNK UKN, UNK, TAPERED
  6. LITHIUM [Suspect]
     Dosage: UNK UKN, UNK
  7. ARIPIPRAZOLE [Concomitant]
     Dosage: UNK UKN, UNK
  8. LEVOTHYROXIN [Concomitant]
     Dosage: UNK UKN, UNK
  9. ALPRAZOLAM [Concomitant]
     Dosage: UNK UKN, UNK

REACTIONS (11)
  - Petit mal epilepsy [Recovered/Resolved]
  - Staring [Unknown]
  - Excessive eye blinking [Unknown]
  - Memory impairment [Unknown]
  - Dyskinesia [Unknown]
  - Stereotypy [Unknown]
  - Abnormal behaviour [Unknown]
  - Psychotic behaviour [Unknown]
  - Hallucination, auditory [Unknown]
  - Hallucination, visual [Unknown]
  - Malaise [Not Recovered/Not Resolved]
